FAERS Safety Report 20560544 (Version 5)
Quarter: 2023Q1

REPORT INFORMATION
  Report Type: Spontaneous
  Country: US (occurrence: US)
  Receive Date: 20220307
  Receipt Date: 20230227
  Transmission Date: 20230417
  Serious: Yes (Other)
  Sender: FDA-Public Use
  Company Number: US-PFIZER INC-202100999984

PATIENT
  Age: 78 Year
  Sex: Female

DRUGS (2)
  1. XELJANZ XR [Suspect]
     Active Substance: TOFACITINIB CITRATE
     Indication: Rheumatoid arthritis
     Dosage: 11 MG, DAILY
     Route: 048
     Dates: start: 202101
  2. XELJANZ XR [Suspect]
     Active Substance: TOFACITINIB CITRATE
     Dosage: 11 MG, DAILY
     Route: 048
     Dates: start: 202107, end: 20210801

REACTIONS (14)
  - Neuropathy peripheral [Unknown]
  - Knee arthroplasty [Unknown]
  - Drug ineffective [Unknown]
  - Chills [Unknown]
  - Headache [Unknown]
  - Abdominal pain [Unknown]
  - Pyrexia [Unknown]
  - Pain [Unknown]
  - Condition aggravated [Unknown]
  - Cough [Unknown]
  - Discouragement [Unknown]
  - Depressed mood [Unknown]
  - Back pain [Unknown]
  - Pain in extremity [Unknown]

NARRATIVE: CASE EVENT DATE: 20210731
